FAERS Safety Report 26073245 (Version 2)
Quarter: 2025Q4

REPORT INFORMATION
  Report Type: Spontaneous
  Country: TR (occurrence: TR)
  Receive Date: 20251121
  Receipt Date: 20251126
  Transmission Date: 20260118
  Serious: No
  Sender: NOVARTIS
  Company Number: TR-002147023-NVSC2025TR146898

PATIENT
  Sex: Male

DRUGS (2)
  1. FINGOLIMOD [Suspect]
     Active Substance: FINGOLIMOD
     Indication: Multiple sclerosis
     Dosage: UNK UNK, QD (EVERYDAY 1X1, 2011-2012)
     Route: 065
  2. FINGOLIMOD [Suspect]
     Active Substance: FINGOLIMOD
     Dosage: UNK UNK, QD (EVERYDAY 1X1, 2011-2012)
     Route: 065

REACTIONS (3)
  - Antibody test abnormal [Unknown]
  - Suspected counterfeit product [Unknown]
  - Product supply issue [Unknown]
